FAERS Safety Report 15184074 (Version 1)
Quarter: 2018Q3

REPORT INFORMATION
  Report Type: Spontaneous
  Country: US (occurrence: US)
  Receive Date: 20180723
  Receipt Date: 20180723
  Transmission Date: 20181010
  Serious: No
  Sender: FDA-Public Use
  Company Number: US-PFIZER INC-2018293837

PATIENT
  Age: 65 Year
  Sex: Female
  Weight: 53.5 kg

DRUGS (1)
  1. METHYLPREDNISOLONE ACETATE. [Suspect]
     Active Substance: METHYLPREDNISOLONE ACETATE
     Indication: ARTHRITIS
     Dosage: 4 MG, AS NEEDED (ONCE A DAY AS NEEDED)
     Dates: start: 201712

REACTIONS (1)
  - Pollakiuria [Unknown]
